FAERS Safety Report 13997515 (Version 2)
Quarter: 2017Q4

REPORT INFORMATION
  Report Type: Spontaneous
  Country: FR (occurrence: FR)
  Receive Date: 20170921
  Receipt Date: 20171116
  Transmission Date: 20180321
  Serious: Yes (Other)
  Sender: FDA-Public Use
  Company Number: FR-MERCK KGAA-2027163

PATIENT
  Sex: Female

DRUGS (2)
  1. NOVOTHYROX [Suspect]
     Active Substance: LEVOTHYROXINE SODIUM
     Indication: PRODUCT USED FOR UNKNOWN INDICATION
  2. NOVOTHYROX [Suspect]
     Active Substance: LEVOTHYROXINE SODIUM

REACTIONS (9)
  - Blood thyroid stimulating hormone increased [Recovered/Resolved]
  - Stress [Recovering/Resolving]
  - Arrhythmia [Recovering/Resolving]
  - Nervousness [Recovering/Resolving]
  - Poor quality sleep [None]
  - Vertigo [Recovering/Resolving]
  - Fatigue [Recovering/Resolving]
  - Migraine [Recovering/Resolving]
  - Decreased appetite [None]
